FAERS Safety Report 7553097-4 (Version None)
Quarter: 2011Q2

REPORT INFORMATION
  Report Type: 
  Country: None (occurrence: None)
  Receive Date: 20110616
  Receipt Date: 20090411
  Transmission Date: 20111010
  Serious: Yes (Death, Other)
  Sender: FDA-Public Use
  Company Number: US-BAYER-200918240NA

PATIENT
  Age: 74 Year
  Sex: Female
  Weight: 70 kg

DRUGS (56)
  1. TRASYLOL [Suspect]
     Indication: MITRAL VALVE REPLACEMENT
     Dosage: NO TEST DOSE, 400ML LOADING DOSE
     Route: 042
     Dates: start: 20061221, end: 20061221
  2. WARFARIN SODIUM [Concomitant]
     Dosage: 5MG 1/2 TAB DAILY NONE ON SUNDAY
     Route: 048
  3. CRESTOR [Concomitant]
     Dosage: 10 MG, QD
  4. COUMADIN [Concomitant]
     Dosage: 3-5MG DAILY
     Route: 048
     Dates: start: 20061110
  5. COREG [Concomitant]
     Dosage: 3.125 MG, BID
     Route: 048
     Dates: start: 20061030
  6. VANCOMYCIN [Concomitant]
     Dosage: 1 GRAM
     Route: 042
     Dates: start: 20061221, end: 20061221
  7. FAMOTIDINE [Concomitant]
     Dosage: 20MG
     Route: 042
     Dates: start: 20061106, end: 20061106
  8. FAMOTIDINE [Concomitant]
     Dosage: 20MG
     Route: 042
     Dates: start: 20061221, end: 20061221
  9. RED BLOOD CELLS [Concomitant]
     Dosage: UNK
     Dates: start: 20061106, end: 20061106
  10. CARDIZEM [Concomitant]
     Dosage: 10MG/HR
     Route: 042
     Dates: start: 20061108, end: 20061122
  11. LANSOPRAZOLE [Concomitant]
     Dosage: 30 MG, QD
     Route: 048
  12. PLAVIX [Concomitant]
     Dosage: 75 MG, QD
     Route: 048
     Dates: start: 20061122
  13. MILRINONE [Concomitant]
     Dosage: 50MCG/1GM
     Route: 042
     Dates: start: 20061213, end: 20061217
  14. MILRINONE [Concomitant]
     Dosage: 2MG
     Route: 042
     Dates: start: 20061106, end: 20061106
  15. ZAROXOLYN [Concomitant]
     Dosage: 5MG
     Route: 048
     Dates: start: 20061213, end: 20061213
  16. TRASYLOL [Suspect]
  17. CRESTOR [Concomitant]
     Dosage: 10 MG, QD
     Route: 048
  18. DIAMOX [Concomitant]
     Dosage: 125MG ONE DOSE
     Route: 048
     Dates: start: 20061215, end: 20061216
  19. LOPRESSOR [Concomitant]
     Dosage: 5 IV TIMES 1
     Route: 042
     Dates: start: 20061218, end: 20061218
  20. DIPHENHYDRAMINE HCL [Concomitant]
     Dosage: 5 GRAMS
     Route: 042
     Dates: start: 20061221, end: 20061221
  21. INSULIN [Concomitant]
     Dosage: 3.72 UNITS
     Route: 042
     Dates: start: 20061106, end: 20061106
  22. ALBUMIN (HUMAN) [Concomitant]
     Dosage: 5% 500ML
     Route: 042
     Dates: start: 20061106, end: 20061106
  23. NITROGLYCERIN [Concomitant]
     Dosage: 0.12MG
     Route: 042
     Dates: start: 20061221, end: 20061222
  24. CRYOPRECIPITATES [Concomitant]
     Dosage: 10 UNITS
     Route: 042
     Dates: start: 20061221, end: 20061221
  25. LABETALOL HCL [Concomitant]
     Dosage: 200 MG, BID
     Route: 048
  26. LISINOPRIL AND HYDROCHLOROTHIAZIDE [Concomitant]
     Dosage: 20/25
     Route: 048
  27. LASIX [Concomitant]
     Dosage: 40-80MG
     Route: 042
     Dates: start: 20061026
  28. LASIX [Concomitant]
     Dosage: 40 MG, BID
     Route: 048
  29. HEPARIN [Concomitant]
     Dosage: 13,000 UNITS
     Dates: start: 20061106, end: 20061106
  30. HEPARIN [Concomitant]
     Dosage: 40,000 UNITS
     Route: 042
     Dates: start: 20061221, end: 20061221
  31. PROTAMINE SULFATE [Concomitant]
     Dosage: 150MG
     Route: 042
     Dates: start: 20061106, end: 20061106
  32. ALBUMIN (HUMAN) [Concomitant]
     Dosage: 12.5% GRAMS
     Dates: start: 20061106, end: 20061106
  33. MANNITOL [Concomitant]
     Dosage: 25 GRAMS
     Dates: start: 20061221, end: 20061221
  34. TRASYLOL [Suspect]
     Indication: CORONARY ARTERY BYPASS
     Dosage: 1 ML TEST DOSE 200ML LOADING DOSE
     Route: 042
     Dates: start: 20061106, end: 20061106
  35. HEPARIN [Concomitant]
     Dosage: 22,000 UNITS
     Route: 042
     Dates: start: 20061106, end: 20061106
  36. HEPARIN [Concomitant]
     Dosage: 10,000 UNITS
     Dates: start: 20061221, end: 20061221
  37. CARDIZEM [Concomitant]
     Dosage: 20MG BOLUS
     Route: 042
     Dates: start: 20061108, end: 20061108
  38. ACETYLSALICYLIC ACID SRT [Concomitant]
     Dosage: 81 MG, QD
     Route: 048
     Dates: start: 20061112
  39. DIPHENHYDRAMINE HCL [Concomitant]
     Dosage: 100MG
     Route: 042
     Dates: start: 20061221, end: 20061221
  40. EPINEPHRINE [Concomitant]
     Dosage: 0.01-1MCG/KG/MINUTE
     Route: 042
     Dates: start: 20061106, end: 20061111
  41. PROTAMINE SULFATE [Concomitant]
     Dosage: 350MG
     Route: 042
     Dates: start: 20061221, end: 20061221
  42. MANNITOL [Concomitant]
     Dosage: 12.5 GRAM
     Dates: start: 20061106, end: 20061106
  43. PLATELETS [Concomitant]
     Dosage: 401 UNITS
     Route: 042
     Dates: start: 20061221, end: 20061221
  44. NORVASC [Concomitant]
     Dosage: 5 MG, QD
     Route: 048
     Dates: start: 20060810
  45. AMIODARONE HCL [Concomitant]
     Dosage: 200 MG, BID
     Route: 048
     Dates: end: 20061214
  46. DIPHENHYDRAMINE HCL [Concomitant]
     Dosage: 100MG
     Route: 042
     Dates: start: 20061106, end: 20061106
  47. ALBUMIN (HUMAN) [Concomitant]
     Dosage: 75 GRAMS
     Dates: start: 20061221, end: 20061221
  48. AMINOCAPROIC ACID [Concomitant]
     Dosage: 5 GRAMS
     Route: 042
     Dates: start: 20061221, end: 20061221
  49. PLASMA [Concomitant]
     Dosage: 450ML
     Route: 042
     Dates: start: 20061221, end: 20061221
  50. RED BLOOD CELLS [Concomitant]
     Dosage: 900ML
     Route: 042
     Dates: start: 20061221, end: 20061221
  51. HEPARIN [Concomitant]
     Dosage: UNK
     Dates: end: 20061027
  52. LOVENOX [Concomitant]
     Dosage: 1MG/HG EVERY 12 HOURS
     Route: 058
     Dates: start: 20061103, end: 20061127
  53. LOVENOX [Concomitant]
     Dosage: UNK
     Dates: start: 20061216, end: 20061219
  54. CARDIZEM [Concomitant]
     Dosage: UNK
     Route: 042
     Dates: start: 20061219, end: 20061219
  55. MILRINONE [Concomitant]
     Dosage: 7MG
     Route: 042
     Dates: start: 20061221, end: 20061222
  56. VANCOMYCIN [Concomitant]
     Dosage: 1000MG
     Route: 042
     Dates: start: 20061106, end: 20061106

REACTIONS (8)
  - PAIN [None]
  - EMOTIONAL DISTRESS [None]
  - ANXIETY [None]
  - RENAL FAILURE ACUTE [None]
  - INJURY [None]
  - RENAL FAILURE [None]
  - UNEVALUABLE EVENT [None]
  - DEPRESSION [None]
